FAERS Safety Report 5614890-8 (Version None)
Quarter: 2008Q1

REPORT INFORMATION
  Report Type: 
  Country: None (occurrence: None)
  Receive Date: 20080131
  Receipt Date: 20080121
  Transmission Date: 20080703
  Serious: Yes (Disabling, Other)
  Sender: FDA-Public Use
  Company Number: 100#08#2008-00427

PATIENT
  Age: 55 Year
  Sex: Male

DRUGS (7)
  1. LITHIUM CARBONATE [Suspect]
     Indication: MANIA
     Dosage: 600 MG
     Dates: start: 19970101
  2. LITHIUM CARBONATE [Suspect]
     Indication: SCHIZOPHRENIA
     Dosage: 600 MG
     Dates: start: 19970101
  3. VALPROIC ACID [Concomitant]
  4. NITRAZEPAM [Concomitant]
  5. HALOPERIDOL [Concomitant]
  6. LEVOPROMAZINE (LEVOPROMAZINE) [Concomitant]
  7. PIPERIDINE (PIPERIDINE) [Concomitant]

REACTIONS (7)
  - HEADACHE [None]
  - OPTIC NERVE DISORDER [None]
  - PAPILLITIS [None]
  - PAPILLOEDEMA [None]
  - PUPILLARY REFLEX IMPAIRED [None]
  - UVEITIS [None]
  - VISUAL DISTURBANCE [None]
